FAERS Safety Report 26147133 (Version 1)
Quarter: 2025Q4

REPORT INFORMATION
  Report Type: Spontaneous
  Country: US (occurrence: US)
  Receive Date: 20251211
  Receipt Date: 20251211
  Transmission Date: 20260117
  Serious: No
  Sender: BRISTOL-MYERS SQUIBB COMPANY
  Company Number: US-BRISTOL-MYERS SQUIBB COMPANY-2025-166825

PATIENT
  Age: 85 Year
  Sex: Male
  Weight: 56.93 kg

DRUGS (8)
  1. ELIQUIS [Suspect]
     Active Substance: APIXABAN
     Indication: Coronary artery disease
  2. ELIQUIS [Suspect]
     Active Substance: APIXABAN
     Indication: Peripheral vascular disorder
  3. ELIQUIS [Suspect]
     Active Substance: APIXABAN
     Indication: Atrial fibrillation
  4. ELIQUIS [Suspect]
     Active Substance: APIXABAN
     Indication: Cardiac flutter
  5. VYNDAMAX [Suspect]
     Active Substance: TAFAMIDIS
     Indication: Cardiac amyloidosis
     Route: 048
  6. VYNDAMAX [Suspect]
     Active Substance: TAFAMIDIS
     Indication: Cardiomyopathy
  7. BUMEX [Concomitant]
     Active Substance: BUMETANIDE
     Indication: Polyuria
  8. LIPITOR [Concomitant]
     Active Substance: ATORVASTATIN CALCIUM
     Indication: Product used for unknown indication
     Dosage: ANTI-LIPID THERAPY

REACTIONS (1)
  - Adverse event [Unknown]
